FAERS Safety Report 7393803-5 (Version None)
Quarter: 2011Q2

REPORT INFORMATION
  Report Type: 
  Country: None (occurrence: None)
  Receive Date: 20110405
  Receipt Date: 20100913
  Transmission Date: 20111010
  Serious: Yes (Other)
  Sender: FDA-Public Use
  Company Number: US-BAYER-201034251NA

PATIENT
  Sex: Female

DRUGS (12)
  1. BUSPAR [Concomitant]
     Route: 048
  2. LAMICTAL [Concomitant]
     Indication: DEPRESSION
     Route: 048
  3. PRILOSEC [Concomitant]
     Route: 048
  4. VITAMIN B-12 [Concomitant]
  5. FAMOTIDINE [Concomitant]
     Route: 048
  6. YASMIN [Suspect]
     Indication: PRODUCT USED FOR UNKNOWN INDICATION
     Route: 048
  7. HYDROCODONE [Concomitant]
  8. YAZ [Suspect]
     Indication: PRODUCT USED FOR UNKNOWN INDICATION
     Route: 048
  9. IRON TABLETS [Concomitant]
     Route: 048
  10. MULTIVITAMINS WITH MINERALS [MULTIVITAMINS WITH MINERALS] [Concomitant]
     Route: 048
  11. NEXIUM [Concomitant]
  12. TRAMADOL [Concomitant]
     Route: 048

REACTIONS (1)
  - RENAL FAILURE [None]
